FAERS Safety Report 4469960-7 (Version None)
Quarter: 2004Q3

REPORT INFORMATION
  Report Type: 
  Country: None (occurrence: None)
  Receive Date: 20040920
  Receipt Date: 20040810
  Transmission Date: 20050211
  Serious: No
  Sender: FDA-Public Use
  Company Number: A-US2004-07098

PATIENT
  Age: 86 Year
  Sex: Male

DRUGS (6)
  1. TRACLEER [Suspect]
     Indication: PULMONARY HYPERTENSION
  2. LASIX [Concomitant]
  3. POTASSIUM (POTASSIUM) [Concomitant]
  4. LEVOXYL [Concomitant]
  5. LISINOPRIL [Concomitant]
  6. FLOMAX [Concomitant]

REACTIONS (1)
  - POLLAKIURIA [None]
